FAERS Safety Report 5826248-7 (Version None)
Quarter: 2008Q3

REPORT INFORMATION
  Report Type: 
  Country: None (occurrence: None)
  Receive Date: 20080729
  Receipt Date: 20080722
  Transmission Date: 20090109
  Serious: Yes (Hospitalization)
  Sender: FDA-Public Use
  Company Number: AU-GILEAD-2008-0017425

PATIENT
  Sex: Male
  Weight: 99 kg

DRUGS (5)
  1. VIREAD [Suspect]
     Indication: HIV INFECTION
     Route: 048
  2. MARAVIROC [Concomitant]
     Indication: HIV INFECTION
     Route: 048
     Dates: start: 20080312
  3. RALTEGRAVIR [Concomitant]
     Indication: HIV INFECTION
     Route: 048
     Dates: start: 20080312
  4. ETRAVIRINE [Concomitant]
     Indication: HIV INFECTION
     Route: 048
  5. KIVEXA [Concomitant]
     Indication: HIV INFECTION
     Route: 048

REACTIONS (1)
  - POLYARTHRITIS [None]
